FAERS Safety Report 16367714 (Version 1)
Quarter: 2019Q2

REPORT INFORMATION
  Report Type: Spontaneous
  Country: PL (occurrence: PL)
  Receive Date: 20190529
  Receipt Date: 20190529
  Transmission Date: 20190711
  Serious: Yes (Other)
  Sender: FDA-Public Use
  Company Number: US-SLATE RUN PHARMACEUTICALS-SLTR-AE-19-25

PATIENT
  Age: 31 Year
  Sex: Male

DRUGS (33)
  1. CEFTRIAXON [Concomitant]
     Active Substance: CEFTRIAXONE
     Indication: UPPER RESPIRATORY TRACT INFECTION
  2. 70436-089-55 GANCICLOVIR FOR INJECTION DRY VIAL USP 500 MG [Suspect]
     Active Substance: GANCICLOVIR SODIUM
     Indication: CYTOMEGALOVIRUS CHORIORETINITIS
     Dosage: INCREASE TO 6 MG/KG OF BODY MASS 2 TIMES PER DAY (VIRAL LOAD OF 120 THOUSAND COPIES/ML).
  3. ANTITHYMOCYTE GLOBULIN [Concomitant]
     Active Substance: THYMOCYTE IMMUNE GLOBULIN NOS
     Indication: LIVER TRANSPLANT REJECTION
  4. PENTAMIDINE [Concomitant]
     Active Substance: PENTAMIDINE
     Indication: PNEUMOCYSTIS JIROVECII INFECTION
  5. 70436-089-55 GANCICLOVIR FOR INJECTION DRY VIAL USP 500 MG [Suspect]
     Active Substance: GANCICLOVIR SODIUM
     Indication: CYTOMEGALOVIRUS CHORIORETINITIS
     Dosage: 5 MG/KG OF BODY MASS 2 TIMES PER DAY
  6. 70436-089-55 GANCICLOVIR FOR INJECTION DRY VIAL USP 500 MG [Suspect]
     Active Substance: GANCICLOVIR SODIUM
     Indication: CYTOMEGALOVIRUS CHORIORETINITIS
     Dosage: GCV WAS INCREASED TO A SUPRATHERAPEUTIC ONE OF 10 MG/KG OF BODY MASS TWICE PER DAY.
  7. PREDNISONE. [Concomitant]
     Active Substance: PREDNISONE
     Indication: IMMUNOSUPPRESSION
  8. POLYVALENT IMMUNOGLOBULINS [Concomitant]
     Dosage: 0.5 G/KG OF BODY MASS
  9. VALGANCICLOVIR. [Concomitant]
     Active Substance: VALGANCICLOVIR
     Indication: CYTOMEGALOVIRUS INFECTION
  10. LEFLUNOMIDE (LFM) [Concomitant]
     Dosage: DOSAGE OF 2  20 MG PO
  11. GRANULOCYTE COLONY- STIMULATING FACTOR [Concomitant]
     Indication: NEUTROPENIA
  12. FLUCONAZOLE. [Concomitant]
     Active Substance: FLUCONAZOLE
  13. MESALAZINE [Concomitant]
     Active Substance: MESALAMINE
     Indication: COLITIS ULCERATIVE
  14. VALGANCICLOVIR. [Concomitant]
     Active Substance: VALGANCICLOVIR
     Indication: CYTOMEGALOVIRUS INFECTION
     Dosage: VCV TREATMENT AT A DOSAGE OF 2  900 MG PER DAY.
  15. FOSCARNET (FOS) [Concomitant]
     Dosage: 2  60 MG/KG OF BODY MASS, THEN INCREASED TO  3  60 MG/KG OF BODY MASS.
  16. COLISTIN [Concomitant]
     Active Substance: COLISTIN
     Indication: SUPERINFECTION BACTERIAL
     Dosage: NEBULIZED INHALATION AS WELL AS INTRAVENOUSLY AT A DOSAGE OF 3 MLN UNITS 3 TIMES A DAY.
  17. TACROLIMUS. [Concomitant]
     Active Substance: TACROLIMUS
     Indication: IMMUNOSUPPRESSION
  18. CLARITHROMYCIN. [Concomitant]
     Active Substance: CLARITHROMYCIN
     Indication: CHEST X-RAY ABNORMAL
  19. VORICONAZOLE. [Concomitant]
     Active Substance: VORICONAZOLE
     Dosage: DOSAGE OF 2  200 MG
  20. LINEZOLID. [Concomitant]
     Active Substance: LINEZOLID
     Dosage: 2  300 MG
  21. GLUCOCORTICOSTEROIDS [Concomitant]
     Active Substance: UNSPECIFIED INGREDIENT
     Indication: LIVER TRANSPLANT REJECTION
  22. VELCADE [Concomitant]
     Active Substance: BORTEZOMIB
     Dosage: VALCADE 4  2 MG 1.25 MG/M2 OF BODY SURFACE
  23. IMMUNE GLOBULIN NOS [Concomitant]
     Active Substance: IMMUNE GLOBULIN NOS
     Dosage: 1 G/KG OF BODY MASS
  24. MYCOPHENOLATE MOFETIL. [Concomitant]
     Active Substance: MYCOPHENOLATE MOFETIL
     Indication: IMMUNOSUPPRESSION
  25. SANDOGLOBULIN [Concomitant]
     Active Substance: HUMAN IMMUNOGLOBULIN G
     Dosage: ADMINISTERED AT 1 G/KG OF BODY MASS.
  26. MEROPENUM FLUCONAZOLE [Concomitant]
  27. HUMAN ANTI-CMV IMMUNOGLOBULIN [Concomitant]
     Dosage: (1 G/KG OF BODY MASS IN 4 INFUSIONS).
  28. MP [Concomitant]
     Dosage: STARTING DOSAGE OF 120 MG WITH CONSECUTIVE REDUCTION TO 40 MG/D.
  29. METHYLPREDNISOLONE. [Concomitant]
     Active Substance: METHYLPREDNISOLONE
     Indication: LIVER TRANSPLANT REJECTION
  30. MYCOPHENOLATE MOFETIL. [Concomitant]
     Active Substance: MYCOPHENOLATE MOFETIL
     Indication: IMMUNOSUPPRESSION
  31. TRIMETHOPRIM/SULFAMETHOXAZOLE [Concomitant]
     Active Substance: SULFAMETHOXAZOLE\TRIMETHOPRIM
     Indication: PNEUMOCYSTIS JIROVECII INFECTION
     Dosage: DOSAGE OF 3  1440 MG, REDUCED TO 2  1440 MG WITH A PLAN TO DISCONTINUE.
  32. LEVOFLOXACIN. [Concomitant]
     Active Substance: LEVOFLOXACIN
     Dosage: 2  500 MG
  33. RIFAMPICIN [Concomitant]
     Active Substance: RIFAMPIN
     Dosage: 2  600 MG

REACTIONS (22)
  - Thrombocytopenia [Unknown]
  - Hypogammaglobulinaemia [Fatal]
  - Tachypnoea [Fatal]
  - Influenza like illness [Fatal]
  - Cough [Fatal]
  - Neutropenia [Fatal]
  - Interstitial lung disease [Fatal]
  - Pneumonitis [Fatal]
  - Drug ineffective [Fatal]
  - Pulmonary fibrosis [Fatal]
  - Dyspnoea at rest [Fatal]
  - Pneumocystis jirovecii infection [Fatal]
  - Cytomegalovirus infection [Fatal]
  - Respiratory distress [Fatal]
  - Body temperature increased [Fatal]
  - Liver transplant rejection [Fatal]
  - Leukocytosis [Unknown]
  - Upper respiratory tract infection [Fatal]
  - Liver function test abnormal [Fatal]
  - Chest X-ray abnormal [Fatal]
  - Pancytopenia [Fatal]
  - Cholestasis [Recovered/Resolved]
